FAERS Safety Report 6704347-5 (Version None)
Quarter: 2010Q2

REPORT INFORMATION
  Report Type: 
  Country: None (occurrence: None)
  Receive Date: 20100430
  Receipt Date: 20100422
  Transmission Date: 20101027
  Serious: Yes (Hospitalization, Other)
  Sender: FDA-Public Use
  Company Number: US-MERCK-0910USA01986

PATIENT
  Age: 68 Year
  Sex: Male
  Weight: 113 kg

DRUGS (3)
  1. IVEMEND [Suspect]
     Indication: NAUSEA
     Route: 042
     Dates: start: 20091007, end: 20091007
  2. IVEMEND [Suspect]
     Indication: VOMITING
     Route: 042
     Dates: start: 20091007, end: 20091007
  3. HEPARIN [Concomitant]
     Route: 065

REACTIONS (5)
  - ABDOMINAL PAIN [None]
  - HYPERHIDROSIS [None]
  - HYPOTENSION [None]
  - PRURITUS [None]
  - SYNCOPE [None]
